FAERS Safety Report 7403618-7 (Version None)
Quarter: 2011Q2

REPORT INFORMATION
  Report Type: 
  Country: None (occurrence: None)
  Receive Date: 20110408
  Receipt Date: 20110405
  Transmission Date: 20111010
  Serious: Yes (Hospitalization)
  Sender: FDA-Public Use
  Company Number: DE-PFIZER INC-DE-WYE-H17545010

PATIENT
  Age: 80 Year
  Sex: Male
  Weight: 69 kg

DRUGS (13)
  1. AZOPT [Concomitant]
     Indication: GLAUCOMA
     Dosage: 0.5 MG, 2X/DAY
     Route: 057
  2. TORSEMIDE [Concomitant]
     Indication: HYPERTENSION
     Dosage: 10 MG, 1X/DAY
     Route: 048
  3. METOPROLOL SUCCINATE [Concomitant]
     Indication: HYPERTENSION
     Dosage: 47.5 MG, 1X/DAY
     Route: 048
  4. GLIBENCLAMIDE [Concomitant]
     Indication: TYPE 2 DIABETES MELLITUS
     Dosage: 1.75 MG, 1X/DAY
     Route: 048
  5. SIMVASTATIN [Concomitant]
     Indication: DYSLIPIDAEMIA
     Dosage: 10 MG, FREQUENCY UNKNOWN
     Route: 048
  6. REKAWAN [Concomitant]
     Indication: HYPOKALAEMIA
     Dosage: 600 MG, 3X/DAY
     Route: 048
  7. PANTOZOL [Suspect]
     Indication: GASTRITIS
     Dosage: 40.0 MG, 1X/DAY
     Route: 048
  8. CIPROFLOXACIN [Suspect]
     Indication: URINARY TRACT INFECTION
     Dosage: 250.0 MG, 2X/DAY
     Route: 048
     Dates: start: 20100701, end: 20100703
  9. DIGITOXIN [Concomitant]
     Indication: ATRIAL FIBRILLATION
     Dosage: 0.07 MG, 1X/DAY
     Route: 048
  10. METFORMIN [Concomitant]
     Indication: TYPE 2 DIABETES MELLITUS
     Dosage: 1000 MG, 1X/DAY
     Route: 048
     Dates: end: 20100703
  11. ACETYLSALICYLIC ACID [Concomitant]
     Indication: ISCHAEMIC HEART DISEASE PROPHYLAXIS
     Dosage: 100 MG, 1X/DAY
     Route: 048
  12. CO-DIOVAN [Concomitant]
     Indication: HYPERTENSION
     Dosage: 1 DF, 1X/DAY
     Route: 048
  13. XALATAN [Concomitant]
     Indication: GLAUCOMA
     Dosage: 1.5 UG, 1X/DAY
     Route: 057

REACTIONS (1)
  - CLOSTRIDIUM DIFFICILE COLITIS [None]
